FAERS Safety Report 11274279 (Version 2)
Quarter: 2015Q3

REPORT INFORMATION
  Report Type: Spontaneous
  Country: FR (occurrence: FR)
  Receive Date: 20150715
  Receipt Date: 20150922
  Transmission Date: 20151125
  Serious: Yes (Hospitalization)
  Sender: FDA-Public Use
  Company Number: FR-PFIZER INC-2015230381

PATIENT
  Age: 70 Year
  Sex: Female

DRUGS (10)
  1. LEVOTHYROX [Concomitant]
     Active Substance: LEVOTHYROXINE
     Dosage: 100 ?G, 1 DF/DAY IN THE MORNING
     Route: 048
  2. STILNOX [Concomitant]
     Active Substance: ZOLPIDEM TARTRATE
     Dosage: 10 MG, 0.5 DF/DAY AT BEDTIME
     Route: 048
  3. EFFEXOR LP [Suspect]
     Active Substance: VENLAFAXINE HYDROCHLORIDE
     Dosage: 75 MG, 1X/DAY
     Route: 048
     Dates: start: 201407
  4. INDAPAMIDE. [Concomitant]
     Active Substance: INDAPAMIDE
     Dosage: 1.25 MG, 1 DF/DAY IN THE MORNING
     Route: 048
  5. VITAMIN D3 [Suspect]
     Active Substance: CHOLECALCIFEROL
     Dosage: 2 DF, DAILY
  6. CALCIUM AND VIT D [Concomitant]
     Active Substance: CALCIUM\VITAMIN D
     Dosage: 2 DF/DAY IN THE MORNING
     Route: 048
  7. LAROXYL ROCHE [Suspect]
     Active Substance: AMITRIPTYLINE
     Dosage: 10 GTT, 1X/DAY
     Route: 048
  8. PERINDOPRIL [Concomitant]
     Active Substance: PERINDOPRIL
     Dosage: 5 MG, 1 DF/DAY IN THE MORNING
     Route: 048
  9. KARDEGIC [Concomitant]
     Active Substance: ASPIRIN LYSINE
     Dosage: 75 MG, 1 DF/DAY IN THE MORNING
     Route: 048
  10. TRANSIPEG [Concomitant]
     Active Substance: POLYETHYLENE GLYCOL 3350
     Dosage: 3 DF/DAY IN THE MORNING
     Route: 048

REACTIONS (5)
  - Psychomotor skills impaired [Recovering/Resolving]
  - Osteoarthritis [Unknown]
  - Cervical myelopathy [Unknown]
  - Depressive symptom [Unknown]
  - Asthenia [Recovering/Resolving]

NARRATIVE: CASE EVENT DATE: 201505
